FAERS Safety Report 23476948 (Version 1)
Quarter: 2024Q1

REPORT INFORMATION
  Report Type: Report from Study
  Country: US (occurrence: US)
  Receive Date: 20240204
  Receipt Date: 20240204
  Transmission Date: 20240410
  Serious: No
  Sender: FDA-Public Use
  Company Number: US-EXELIXIS-CABO-23064849

PATIENT
  Age: 57 Year
  Sex: Male
  Weight: 105.31 kg

DRUGS (1)
  1. CABOMETYX [Suspect]
     Active Substance: CABOZANTINIB S-MALATE
     Indication: Renal cancer
     Dosage: 40 MG, QD
     Route: 048
     Dates: start: 20230513

REACTIONS (5)
  - Hypoaesthesia [Unknown]
  - Dry throat [Unknown]
  - Oral discomfort [Unknown]
  - Dry mouth [Unknown]
  - Taste disorder [Unknown]

NARRATIVE: CASE EVENT DATE: 20230501
